FAERS Safety Report 13330669 (Version 1)
Quarter: 2017Q1

REPORT INFORMATION
  Report Type: Spontaneous
  Country: SE (occurrence: SE)
  Receive Date: 20170314
  Receipt Date: 20170314
  Transmission Date: 20170428
  Serious: Yes (Hospitalization)
  Sender: FDA-Public Use
  Company Number: SE-ASTRAZENECA-2017SE24247

PATIENT
  Age: 73 Year
  Sex: Female

DRUGS (5)
  1. TROMBYL [Concomitant]
     Active Substance: ASPIRIN
  2. ENALAPRIL [Concomitant]
     Active Substance: ENALAPRIL
  3. CRESTOR [Suspect]
     Active Substance: ROSUVASTATIN CALCIUM
     Indication: LIPIDS
     Route: 048
     Dates: start: 20160201, end: 20160510
  4. PANODIL [Concomitant]
     Active Substance: ACETAMINOPHEN
  5. CRESTOR [Suspect]
     Active Substance: ROSUVASTATIN CALCIUM
     Indication: LIPIDS
     Route: 048
     Dates: start: 20160510, end: 201610

REACTIONS (4)
  - Bundle branch block left [Unknown]
  - Rhabdomyolysis [Recovered/Resolved]
  - Myocardial infarction [Unknown]
  - Hepatic enzyme abnormal [Unknown]

NARRATIVE: CASE EVENT DATE: 20161103
